FAERS Safety Report 17878297 (Version 2)
Quarter: 2020Q2

REPORT INFORMATION
  Report Type: Spontaneous
  Country: PL (occurrence: PL)
  Receive Date: 20200610
  Receipt Date: 20200619
  Transmission Date: 20200714
  Serious: Yes (Hospitalization, Other)
  Sender: FDA-Public Use
  Company Number: PL-ACTELION-A-CH2020-205824

PATIENT
  Age: 20 Year
  Sex: Male

DRUGS (2)
  1. EPOPROSTENOL SODIUM. [Suspect]
     Active Substance: EPOPROSTENOL SODIUM
     Indication: PULMONARY ARTERIAL HYPERTENSION
     Route: 042
  2. EPOPROSTENOL SODIUM. [Suspect]
     Active Substance: EPOPROSTENOL SODIUM
     Dosage: 91.5 NG/KG, PER MIN
     Route: 042

REACTIONS (8)
  - Condition aggravated [Recovering/Resolving]
  - Lung transplant [Recovered/Resolved]
  - Balloon atrial septostomy [Unknown]
  - Pulmonary arterial hypertension [Recovering/Resolving]
  - Right ventricular failure [Recovering/Resolving]
  - Right-to-left cardiac shunt [Unknown]
  - Fluid retention [Recovering/Resolving]
  - Mobility decreased [Recovering/Resolving]

NARRATIVE: CASE EVENT DATE: 201902
